FAERS Safety Report 6309163-4 (Version None)
Quarter: 2009Q3

REPORT INFORMATION
  Report Type: 
  Country: None (occurrence: None)
  Receive Date: 20090814
  Receipt Date: 20090529
  Transmission Date: 20100115
  Serious: No
  Sender: FDA-Public Use
  Company Number: A0785580A

PATIENT
  Age: 68 Year
  Sex: Male

DRUGS (13)
  1. COREG CR [Suspect]
     Indication: HYPERTENSION
     Dosage: 40MG PER DAY
     Route: 048
     Dates: start: 20090401
  2. AZOPT EYE DROPS [Suspect]
     Indication: GLAUCOMA
     Dosage: 1DROP TWICE PER DAY
     Dates: end: 20090501
  3. DORZOLAMIDE HYDROCHLORIDE [Suspect]
     Indication: GLAUCOMA
     Dosage: 1DROP TWICE PER DAY
     Dates: start: 20090501, end: 20090518
  4. PRAVASTATIN [Suspect]
     Dosage: 80MG PER DAY
     Route: 048
     Dates: start: 20090401
  5. DIOVAN [Concomitant]
  6. FLOMAX [Concomitant]
  7. SINGULAIR [Concomitant]
  8. AVANDIA [Concomitant]
  9. NORVASC [Concomitant]
  10. BUSPAR [Concomitant]
  11. METFORMIN HCL [Concomitant]
  12. TRAVATAN [Concomitant]
  13. VALTREX [Concomitant]

REACTIONS (6)
  - DYSGEUSIA [None]
  - EYE BURNS [None]
  - ORAL DISCOMFORT [None]
  - PHARYNGEAL ULCERATION [None]
  - PRODUCT TASTE ABNORMAL [None]
  - THROAT IRRITATION [None]
